FAERS Safety Report 7419571-6 (Version None)
Quarter: 2011Q1

REPORT INFORMATION
  Report Type: 
  Country: None (occurrence: None)
  Receive Date: 20110302
  Receipt Date: 20110106
  Transmission Date: 20110831
  Serious: Yes (Other)
  Sender: FDA-Public Use
  Company Number: 025116

PATIENT
  Sex: Female

DRUGS (6)
  1. METHOTREXATE [Concomitant]
  2. CIMZIA [Suspect]
     Indication: RHEUMATOID ARTHRITIS
     Dosage: 200 MG 1X/2 WEEKS SUBCUTANEOUS
     Route: 058
     Dates: start: 20091030
  3. FOLIC ACID [Concomitant]
  4. PREDNISONE [Concomitant]
  5. METOPROLOL SUCCINATE [Concomitant]
  6. WELLBUTRIN [Concomitant]

REACTIONS (4)
  - PARAESTHESIA [None]
  - BLOOD PRESSURE INCREASED [None]
  - CEREBROVASCULAR ACCIDENT [None]
  - HYPOAESTHESIA [None]
